FAERS Safety Report 23763380 (Version 2)
Quarter: 2024Q2

REPORT INFORMATION
  Report Type: Spontaneous
  Country: PT (occurrence: PT)
  Receive Date: 20240419
  Receipt Date: 20240502
  Transmission Date: 20240716
  Serious: Yes (Death, Hospitalization, Other)
  Sender: FDA-Public Use
  Company Number: PT-VANTIVE-2024BAX011635

PATIENT
  Age: 85 Year
  Sex: Female
  Weight: 40 kg

DRUGS (1)
  1. EXTRANEAL [Suspect]
     Active Substance: CALCIUM CHLORIDE\ICODEXTRIN\MAGNESIUM CHLORIDE\SODIUM CHLORIDE\SODIUM LACTATE
     Dosage: USUAL SCHEDULE: 1000 ML IN THE EVENING, (TAKEN OUT IN THE MORNING)
     Route: 033

REACTIONS (7)
  - Death [Fatal]
  - Herpes zoster [Not Recovered/Not Resolved]
  - Skin infection [Not Recovered/Not Resolved]
  - Femur fracture [Unknown]
  - Fall [Unknown]
  - Mobility decreased [Unknown]
  - Nosocomial infection [Unknown]

NARRATIVE: CASE EVENT DATE: 20240118
